FAERS Safety Report 8916669 (Version 3)
Quarter: 2015Q4

REPORT INFORMATION
  Report Type: Spontaneous
  Country: ES (occurrence: ES)
  Receive Date: 20121120
  Receipt Date: 20151228
  Transmission Date: 20160305
  Serious: Yes (Other)
  Sender: FDA-Public Use
  Company Number: ES-MERCK-1211ESP007394

PATIENT
  Sex: Male
  Weight: 2 kg

DRUGS (3)
  1. COSOPT [Suspect]
     Active Substance: DORZOLAMIDE HYDROCHLORIDE\TIMOLOL MALEATE
     Dosage: UNK
     Route: 064
     Dates: start: 20090123, end: 200909
  2. COSOPT [Suspect]
     Active Substance: DORZOLAMIDE HYDROCHLORIDE\TIMOLOL MALEATE
     Dosage: POSTPARTUM PERIOD
     Route: 063
  3. TIMOFTOL 0.50% [Suspect]
     Active Substance: TIMOLOL MALEATE
     Dosage: THE SECOND TRIMESTER
     Route: 064
     Dates: start: 2009, end: 2009

REACTIONS (6)
  - Foetal exposure during pregnancy [Recovered/Resolved]
  - Foetal growth restriction [Recovered/Resolved]
  - Foetal disorder [Recovered/Resolved]
  - Caesarean section [None]
  - Exposure during breast feeding [Recovered/Resolved]
  - Premature baby [Unknown]

NARRATIVE: CASE EVENT DATE: 200909
